FAERS Safety Report 5593327-1 (Version None)
Quarter: 2008Q1

REPORT INFORMATION
  Report Type: 
  Country: None (occurrence: None)
  Receive Date: 20080116
  Receipt Date: 20080114
  Transmission Date: 20080703
  Serious: Yes (Hospitalization)
  Sender: FDA-Public Use
  Company Number: B0503446A

PATIENT
  Age: 85 Year
  Sex: Female

DRUGS (3)
  1. AVANDIA [Suspect]
     Dosage: 4MG PER DAY
     Route: 048
     Dates: start: 20071025, end: 20071211
  2. ARICEPT [Suspect]
     Dosage: 5MG PER DAY
     Route: 048
  3. PREVISCAN [Concomitant]
     Indication: ATRIAL FIBRILLATION
     Dosage: 10MG PER DAY
     Route: 048

REACTIONS (3)
  - DYSPNOEA [None]
  - FACE OEDEMA [None]
  - PULMONARY EMBOLISM [None]
